FAERS Safety Report 10997818 (Version 1)
Quarter: 2015Q2

REPORT INFORMATION
  Report Type: Spontaneous
  Country: US (occurrence: US)
  Receive Date: 20150408
  Receipt Date: 20150408
  Transmission Date: 20150821
  Serious: No
  Sender: FDA-Public Use
  Company Number: US-BANPHARM-20143123

PATIENT
  Age: 70 Year
  Sex: Female
  Weight: 63.5 kg

DRUGS (13)
  1. ALEVE [Suspect]
     Active Substance: NAPROXEN SODIUM
     Indication: PAIN
     Route: 048
     Dates: start: 201409, end: 20140927
  2. SINGULAIR [Concomitant]
     Active Substance: MONTELUKAST SODIUM
  3. ZANTAC [Concomitant]
     Active Substance: RANITIDINE HYDROCHLORIDE
  4. VITAMIN D [Concomitant]
     Active Substance: CHOLECALCIFEROL
  5. LOSARTIN [Concomitant]
     Active Substance: LOSARTAN
  6. ZYRTEC [Concomitant]
     Active Substance: CETIRIZINE HYDROCHLORIDE
  7. ALEVE [Suspect]
     Active Substance: NAPROXEN SODIUM
     Indication: PAIN
     Dates: start: 201408, end: 201409
  8. ASTELIN [Concomitant]
     Active Substance: AZELASTINE HYDROCHLORIDE
  9. QVAR INHALER [Concomitant]
  10. FENOFIBRATE. [Concomitant]
     Active Substance: FENOFIBRATE
  11. CALCIUM [Concomitant]
     Active Substance: CALCIUM
  12. NATURAL MULTIVITAMIN [Concomitant]
  13. IBUPROFEN. [Concomitant]
     Active Substance: IBUPROFEN

REACTIONS (4)
  - Anal pruritus [Recovered/Resolved]
  - Allergy to chemicals [Unknown]
  - Pruritus generalised [Recovered/Resolved]
  - Anorectal discomfort [Recovered/Resolved]

NARRATIVE: CASE EVENT DATE: 201409
